FAERS Safety Report 15362569 (Version 2)
Quarter: 2018Q3

REPORT INFORMATION
  Report Type: Spontaneous
  Country: HU (occurrence: HU)
  Receive Date: 20180907
  Receipt Date: 20180917
  Transmission Date: 20181010
  Serious: Yes (Death, Other)
  Sender: FDA-Public Use
  Company Number: HU-ELI_LILLY_AND_COMPANY-HU201809000908

PATIENT
  Age: 33 Year
  Sex: Female

DRUGS (5)
  1. REXETIN [Concomitant]
     Active Substance: PAROXETINE HYDROCHLORIDE
     Indication: DYSPHORIA
     Dosage: UNK, UNKNOWN
     Route: 065
  2. PAROXETINE. [Concomitant]
     Active Substance: PAROXETINE
     Indication: DYSPHORIA
     Dosage: UNK, UNKNOWN
     Route: 065
  3. ZYPADHERA [Suspect]
     Active Substance: OLANZAPINE PAMOATE
     Dosage: 405 MG, MONTHLY (1/M)
     Route: 030
     Dates: start: 201001, end: 20180718
  4. RIVOTRIL [Concomitant]
     Active Substance: CLONAZEPAM
     Indication: PRODUCT USED FOR UNKNOWN INDICATION
     Dosage: UNK, UNKNOWN
     Route: 065
  5. ZYPADHERA [Suspect]
     Active Substance: OLANZAPINE PAMOATE
     Indication: SCHIZOPHRENIA
     Dosage: 300 MG, 2/M
     Route: 030
     Dates: start: 200911, end: 201001

REACTIONS (2)
  - Completed suicide [Fatal]
  - Suicide attempt [Unknown]

NARRATIVE: CASE EVENT DATE: 2018
